FAERS Safety Report 4580263-2 (Version None)
Quarter: 2005Q1

REPORT INFORMATION
  Report Type: 
  Country: None (occurrence: None)
  Receive Date: 20050129
  Receipt Date: 20040426
  Transmission Date: 20050727
  Serious: Yes (Death)
  Sender: FDA-Public Use
  Company Number: 04USA0021

PATIENT
  Age: 66 Year
  Sex: Male

DRUGS (5)
  1. GLIADEL [Suspect]
     Indication: GLIOBLASTOMA MULTIFORME
     Dates: start: 20040414, end: 20040424
  2. GENTAMICIN SULFATE [Concomitant]
  3. DEXAMETHASONE [Concomitant]
  4. PHENYTOIN SODIUM CAP [Concomitant]
  5. FAMOTIDINE [Concomitant]

REACTIONS (8)
  - BRAIN OEDEMA [None]
  - COMA [None]
  - DECEREBRATION [None]
  - MYDRIASIS [None]
  - PUPIL FIXED [None]
  - PUPILLARY LIGHT REFLEX TESTS ABNORMAL [None]
  - PUPILS UNEQUAL [None]
  - SUBDURAL HAEMATOMA [None]
